FAERS Safety Report 13737644 (Version 1)
Quarter: 2017Q3

REPORT INFORMATION
  Report Type: Report from Study
  Country: US (occurrence: US)
  Receive Date: 20170710
  Receipt Date: 20170710
  Transmission Date: 20171127
  Serious: No
  Sender: FDA-Public Use
  Company Number: US-SAOL THERAPEUTICS-2016SAO00125

PATIENT
  Sex: Female

DRUGS (8)
  1. BUPIVACAINE. [Suspect]
     Active Substance: BUPIVACAINE
     Dosage: 22.484 MG\DAY
     Route: 037
     Dates: start: 20140318
  2. BUPIVACAINE. [Suspect]
     Active Substance: BUPIVACAINE
     Dosage: 24.728 MG\DAY
     Route: 037
     Dates: start: 20140324
  3. CLONIDINE. [Suspect]
     Active Substance: CLONIDINE
     Dosage: 412.21 ?G, \DAY
     Route: 037
     Dates: start: 20140318
  4. FENTANYL. [Suspect]
     Active Substance: FENTANYL
     Dosage: 299.79 ?G, \DAY
     Route: 037
     Dates: start: 20140318
  5. COMPOUNDED BACLOFEN [Suspect]
     Active Substance: BACLOFEN
     Dosage: 74.95 ?G, \DAY
     Route: 037
     Dates: start: 20140318, end: 20140414
  6. COMPOUNDED BACLOFEN [Suspect]
     Active Substance: BACLOFEN
     Dosage: 82.43 ?G, \DAY
     Route: 037
     Dates: start: 20160324
  7. FENTANYL. [Suspect]
     Active Substance: FENTANYL
     Dosage: 329.70 ?G, \DAY
     Route: 037
     Dates: start: 20140324
  8. CLONIDINE. [Suspect]
     Active Substance: CLONIDINE
     Dosage: 550.0 ?G,\DAY
     Route: 037
     Dates: start: 20160324

REACTIONS (4)
  - Visual impairment [Recovered/Resolved]
  - Headache [Recovered/Resolved]
  - Nausea [Recovered/Resolved]
  - Burning sensation [Recovered/Resolved]

NARRATIVE: CASE EVENT DATE: 20140324
